FAERS Safety Report 24444284 (Version 2)
Quarter: 2024Q4

REPORT INFORMATION
  Report Type: Report from Study
  Country: US (occurrence: US)
  Receive Date: 20241016
  Receipt Date: 20241017
  Transmission Date: 20250115
  Serious: No
  Sender: ROCHE
  Company Number: US-ROCHE-2838773

PATIENT
  Age: 56 Year
  Sex: Female

DRUGS (2)
  1. RITUXAN [Suspect]
     Active Substance: RITUXIMAB
     Indication: Systemic lupus erythematosus
     Dosage: RITUXAN 500MG/50ML IV SOLUTION, QUANTITY: 2 INFUSED ON WEEK 0,2 EVERY 6 MONTHS
     Route: 041
  2. RITUXAN [Suspect]
     Active Substance: RITUXIMAB
     Dosage: 500 MG SINGLE-USE VIAL
     Route: 041
     Dates: start: 20230907

REACTIONS (2)
  - Off label use [Unknown]
  - No adverse event [Unknown]
